FAERS Safety Report 8804108 (Version 1)
Quarter: 2012Q4

REPORT INFORMATION
  Report Type: 
  Country: JP (occurrence: JP)
  Receive Date: 20120924
  Receipt Date: 20120924
  Transmission Date: 20130627
  Serious: Yes (Hospitalization)
  Sender: FDA-Public Use
  Company Number: JP-GLAXOSMITHKLINE-B0831158A

PATIENT
  Age: 89 Year
  Sex: Male

DRUGS (2)
  1. VALTREX [Suspect]
     Indication: HERPES ZOSTER
     Dosage: 1000MG Three times per day
     Route: 048
     Dates: start: 20120824, end: 20120830
  2. CHINESE MEDICINE [Concomitant]
     Indication: NASOPHARYNGITIS
     Dosage: 2.5G Three times per day
     Route: 048
     Dates: start: 20120827, end: 20120830

REACTIONS (3)
  - Renal failure acute [Recovering/Resolving]
  - Dyskinesia [Recovering/Resolving]
  - Malaise [Recovering/Resolving]
